FAERS Safety Report 10169703 (Version 1)
Quarter: 2014Q2

REPORT INFORMATION
  Report Type: Spontaneous
  Country: IT (occurrence: IT)
  Receive Date: 20140513
  Receipt Date: 20140513
  Transmission Date: 20141212
  Serious: Yes (Other)
  Sender: FDA-Public Use
  Company Number: IT-TEVA-480772ISR

PATIENT
  Age: 64 Year
  Sex: Female
  Weight: 66 kg

DRUGS (5)
  1. CARBOPLATINO TEVA [Suspect]
     Indication: BREAST CANCER
     Dosage: 400 MILLIGRAM DAILY;
     Route: 041
     Dates: start: 20140317, end: 20140507
  2. GEMCITABINA SUN [Concomitant]
     Dosage: 1300 MILLIGRAM DAILY;
     Route: 042
     Dates: start: 20140317, end: 20140507
  3. GRANISETRON B.BRAUN [Concomitant]
     Indication: PREMEDICATION
     Dosage: 3 MILLIGRAM DAILY;
     Route: 042
     Dates: start: 20140317, end: 20140507
  4. DESAMETASONE FOSFATO HOSPIRA [Concomitant]
     Dosage: 4 MILLIGRAM DAILY;
     Route: 042
     Dates: start: 20140317, end: 20140507
  5. NEXIUM [Concomitant]
     Indication: PREMEDICATION
     Dosage: 40 MILLIGRAM DAILY;
     Route: 042
     Dates: start: 20140317, end: 20140507

REACTIONS (5)
  - Chest pain [Recovered/Resolved]
  - Rash [Recovered/Resolved]
  - Loss of consciousness [Recovered/Resolved]
  - Dyspnoea [Recovered/Resolved]
  - Off label use [Unknown]
